FAERS Safety Report 12607643 (Version 6)
Quarter: 2017Q3

REPORT INFORMATION
  Report Type: Report from Study
  Country: FR (occurrence: FR)
  Receive Date: 20160729
  Receipt Date: 20170822
  Transmission Date: 20171127
  Serious: Yes (Hospitalization)
  Sender: FDA-Public Use
  Company Number: FR-JNJFOC-20160720583

PATIENT
  Age: 73 Year
  Sex: Male

DRUGS (4)
  1. OBINUTUZUMAB. [Suspect]
     Active Substance: OBINUTUZUMAB
     Indication: MANTLE CELL LYMPHOMA
     Dosage: FIRST CYCLE (DAYS 1-8-5) AND THE SECOND CYCLE DAY1. THE DAY1 OF CYCLE 3 WAS POSTPONED
     Route: 042
     Dates: start: 20160527, end: 20160623
  2. IBRUTINIB [Suspect]
     Active Substance: IBRUTINIB
     Indication: MANTLE CELL LYMPHOMA
     Dosage: CYCLE 1 COMPLETED - DAYS 2 TO DAY 28
     Route: 048
     Dates: start: 20160524, end: 20160720
  3. OBINUTUZUMAB. [Suspect]
     Active Substance: OBINUTUZUMAB
     Indication: MANTLE CELL LYMPHOMA
     Dosage: C3 DAY 1
     Route: 042
     Dates: start: 20160728
  4. IBRUTINIB [Suspect]
     Active Substance: IBRUTINIB
     Indication: MANTLE CELL LYMPHOMA
     Dosage: C3 DAY 1
     Route: 048
     Dates: start: 20160728

REACTIONS (2)
  - Synovitis [Recovered/Resolved]
  - Gouty arthritis [Recovered/Resolved with Sequelae]

NARRATIVE: CASE EVENT DATE: 20160717
